FAERS Safety Report 5578190-7 (Version None)
Quarter: 2007Q4

REPORT INFORMATION
  Report Type: 
  Country: None (occurrence: None)
  Receive Date: 20071231
  Receipt Date: 20071220
  Transmission Date: 20080405
  Serious: Yes (Other)
  Sender: FDA-Public Use
  Company Number: JP-PFIZER INC-2007106429

PATIENT
  Sex: Female

DRUGS (4)
  1. CELECOX [Suspect]
     Indication: OSTEOARTHRITIS
     Dosage: DAILY DOSE:200MG
     Route: 048
     Dates: start: 20071129, end: 20071130
  2. RISEDRONATE SODIUM HYDRATE [Concomitant]
     Dosage: DAILY DOSE:2.5MG
     Route: 048
  3. OMEPRAZOLE [Concomitant]
  4. FAMOTIDINE [Concomitant]
     Dates: start: 20061207

REACTIONS (1)
  - ANAPHYLACTIC SHOCK [None]
